FAERS Safety Report 6866105 (Version 2)
Quarter: 2020Q3

REPORT INFORMATION
  Report Type: Report from Study
  Country: KR (occurrence: KR)
  Receive Date: 20081224
  Receipt Date: 20090116
  Transmission Date: 20201104
  Serious: Yes (Hospitalization)
  Sender: FDA-Public Use
  Company Number: KR-WYE-H07393508

PATIENT
  Age: 72 Year
  Sex: Female
  Weight: 53.3 kg

DRUGS (18)
  1. ZANTAC [Concomitant]
     Active Substance: RANITIDINE HYDROCHLORIDE
     Indication: PROPHYLAXIS
     Dosage: NOT PROVIDED
     Dates: start: 20081201
  2. PHENFORMIN [Concomitant]
     Active Substance: PHENFORMIN
     Indication: INSOMNIA
     Dosage: NOT PROVIDED
     Dates: start: 20081213
  3. ALLOPURINOL. [Concomitant]
     Active Substance: ALLOPURINOL
     Indication: HYPERURICAEMIA
     Dosage: NOT PROVIDED
     Dates: start: 20081215
  4. URSO 250 [Concomitant]
     Active Substance: URSODIOL
     Indication: ASPARTATE AMINOTRANSFERASE INCREASED
     Dosage: NOT PROVIDED
     Dates: start: 20081215
  5. RITUXIMAB. [Suspect]
     Active Substance: RITUXIMAB
     Indication: B-CELL LYMPHOMA
     Dosage: 6TH CYCLE 375 MG/^2 ON DAY 1
     Route: 042
     Dates: start: 20080806, end: 20081214
  6. RHINATHIOL [Concomitant]
     Indication: INFLUENZA
     Dosage: NOT PROVIDED
     Dates: start: 20081220
  7. CODEINE [Concomitant]
     Active Substance: CODEINE
     Indication: INFLUENZA
     Dosage: NOT PROVIDED
     Dates: start: 20081221
  8. ADVANTAN [Concomitant]
     Indication: PRURITUS
     Dosage: NOT PROVIDED
     Dates: start: 20080726
  9. GLYCERIN [Concomitant]
     Indication: PROPHYLAXIS
     Dosage: NOT PROVIDED
     Dates: start: 20081209
  10. FLUDARABINE [Suspect]
     Active Substance: FLUDARABINE PHOSPHATE
     Indication: B-CELL LYMPHOMA
     Dosage: 6TH CYCLE 25MG/M^2 ON DAY 2?4
     Route: 042
     Dates: start: 20080806, end: 20081214
  11. ATENOLOL. [Concomitant]
     Active Substance: ATENOLOL
     Indication: HYPERTENSION
     Dosage: NOT PROVIDED
     Dates: start: 1968
  12. MITOXANTRONE HYDROCHLORIDE. [Suspect]
     Active Substance: MITOXANTRONE HYDROCHLORIDE
     Indication: B-CELL LYMPHOMA
     Dosage: 6TH CYCLE 10MG/M^2 ON DAY 2
     Route: 042
     Dates: start: 20080806, end: 20081214
  13. STILNOX [Concomitant]
     Active Substance: ZOLPIDEM TARTRATE
  14. POVIDONE?IODINE. [Concomitant]
     Active Substance: POVIDONE-IODINE
     Indication: PROPHYLAXIS
     Dosage: NOT PROVIDED
     Dates: start: 20080724
  15. MAGNESIUM OXIDE. [Concomitant]
     Active Substance: MAGNESIUM OXIDE
     Indication: PROPHYLAXIS
     Dosage: NOT PROVIDED
     Dates: start: 20081110
  16. DEXAMETHASONE. [Suspect]
     Active Substance: DEXAMETHASONE
     Indication: B-CELL LYMPHOMA
     Route: 048
     Dates: start: 20080806, end: 20081214
  17. TANTUM [Concomitant]
     Active Substance: BENZYDAMINE HYDROCHLORIDE
     Indication: PROPHYLAXIS
     Dosage: NOT PROVIDED
     Dates: start: 20080724
  18. ASPIRIN. [Concomitant]
     Active Substance: ASPIRIN
     Indication: HYPERTENSION
     Dosage: NOT PROVIDED
     Dates: start: 20081209

REACTIONS (1)
  - Febrile neutropenia [Recovered/Resolved]

NARRATIVE: CASE EVENT DATE: 20081221
